FAERS Safety Report 4456049-6 (Version None)
Quarter: 2004Q3

REPORT INFORMATION
  Report Type: 
  Country: None (occurrence: None)
  Receive Date: 20040920
  Receipt Date: 20040909
  Transmission Date: 20050211
  Serious: Yes (Other)
  Sender: FDA-Public Use
  Company Number: CHNY2004AR01763

PATIENT
  Age: 38 Year
  Sex: Female

DRUGS (1)
  1. NICOTINE [Suspect]
     Indication: SMOKING CESSATION THERAPY
     Dosage: TRANSDERMAL
     Route: 062
     Dates: start: 20040901

REACTIONS (6)
  - DRUG TOXICITY [None]
  - DYSPNOEA [None]
  - RESPIRATORY DISORDER [None]
  - SKIN ODOUR ABNORMAL [None]
  - SYNCOPE [None]
  - VOMITING [None]
